FAERS Safety Report 25952089 (Version 1)
Quarter: 2025Q4

REPORT INFORMATION
  Report Type: Spontaneous
  Country: US (occurrence: None)
  Receive Date: 20251022
  Receipt Date: 20251022
  Transmission Date: 20260117
  Serious: Yes (Hospitalization)
  Sender: FDA-CTU
  Company Number: None

PATIENT
  Age: 25 Year
  Sex: Female
  Weight: 81.65 kg

DRUGS (2)
  1. VANCOMYCIN [Suspect]
     Active Substance: VANCOMYCIN
     Indication: Arthritis bacterial
     Dosage: FREQUENCY : EVERY 12 HOURS;?
     Route: 042
     Dates: start: 20251014, end: 20251020
  2. CEFTRIAXONE [Suspect]
     Active Substance: CEFTRIAXONE
     Indication: Arthritis bacterial
     Dosage: FREQUENCY : DAILY;?
     Route: 042
     Dates: start: 20251014, end: 20251020

REACTIONS (1)
  - Vancomycin infusion reaction [None]

NARRATIVE: CASE EVENT DATE: 20251020
